FAERS Safety Report 8604674 (Version 2)
Quarter: 2013Q2

REPORT INFORMATION
  Report Type: Report from Study
  Country: BR (occurrence: BR)
  Receive Date: 20120608
  Receipt Date: 20130503
  Transmission Date: 20140414
  Serious: Yes (Hospitalization)
  Sender: FDA-Public Use
  Company Number: BR-ASTELLAS-2012US005091

PATIENT
  Age: 69 Year
  Sex: 0
  Weight: 76 kg

DRUGS (12)
  1. OSI-906 [Suspect]
     Indication: LUNG NEOPLASM MALIGNANT
     Dosage: 150 MG, BID
     Route: 048
     Dates: start: 20120503
  2. ERLOTINIB [Suspect]
     Indication: LUNG NEOPLASM MALIGNANT
     Dosage: 100 MG, UID/QD
     Route: 048
     Dates: start: 20120515, end: 20120527
  3. ERLOTINIB [Suspect]
     Dosage: 75 MG, UID/QD
     Route: 048
  4. LIPITOR [Concomitant]
     Indication: CORONARY ARTERY DISEASE
     Dosage: 20 MG, UID/QD
     Route: 048
     Dates: start: 2009
  5. ZETIA [Concomitant]
     Indication: CORONARY ARTERY DISEASE
     Dosage: 10 MG, UID/QD
     Route: 048
     Dates: start: 2009
  6. CARDIZEM SR 90 [Concomitant]
     Indication: CORONARY ARTERY DISEASE
     Dosage: 90 MG, UID/QD
     Route: 048
     Dates: start: 2009
  7. CARDIZEM SR 90 [Concomitant]
     Indication: HYPERTENSION
  8. SOMALGIN [Concomitant]
     Indication: CORONARY ARTERY DISEASE
     Dosage: 100 MG, QHS
     Route: 048
     Dates: start: 2009
  9. BENICAR HCT [Concomitant]
     Indication: HYPERTENSION
     Dosage: 20 MG, UID/QD
     Route: 048
     Dates: start: 2009
  10. LEXAPRO [Concomitant]
     Indication: ANXIETY
     Dosage: 1 DF, UID/QD
     Route: 048
     Dates: start: 201111
  11. SPIRIVA [Concomitant]
     Indication: ASTHMA
     Dosage: UNK
     Route: 065
     Dates: start: 2009
  12. RIVOTRIL [Concomitant]
     Indication: ANXIETY
     Dosage: 4 DROPS, QHS
     Route: 048
     Dates: start: 201111

REACTIONS (2)
  - Hypotension [Recovered/Resolved]
  - Diarrhoea [Recovered/Resolved]
